FAERS Safety Report 5755737-9 (Version None)
Quarter: 2008Q2

REPORT INFORMATION
  Report Type: 
  Country: None (occurrence: None)
  Receive Date: 20080528
  Receipt Date: 20080515
  Transmission Date: 20081010
  Serious: Yes (Hospitalization)
  Sender: FDA-Public Use
  Company Number: 08P-0620452566-00

PATIENT
  Age: 6 Month
  Sex: Male

DRUGS (3)
  1. SYNAGIS [Suspect]
     Indication: IMMUNISATION
     Dosage: SUBCUTANEOUS
     Route: 058
     Dates: end: 20080404
  2. SYNAGIS [Suspect]
     Indication: RESPIRATORY SYNCYTIAL VIRUS INFECTION
     Dosage: SUBCUTANEOUS
     Route: 058
     Dates: end: 20080404
  3. MONTELUKSAT [Concomitant]

REACTIONS (2)
  - BRONCHITIS CHRONIC [None]
  - RESPIRATORY SYNCYTIAL VIRUS INFECTION [None]
